FAERS Safety Report 18384118 (Version 1)
Quarter: 2020Q4

REPORT INFORMATION
  Report Type: Spontaneous
  Country: IE (occurrence: IE)
  Receive Date: 20201015
  Receipt Date: 20201015
  Transmission Date: 20210114
  Serious: Yes (Other)
  Sender: FDA-Public Use
  Company Number: IE-AMGEN-IRLSP2020166742

PATIENT

DRUGS (5)
  1. METHOTREXATE. [Concomitant]
     Active Substance: METHOTREXATE
  2. ADALIMUMAB [Suspect]
     Active Substance: ADALIMUMAB
     Indication: PSORIATIC ARTHROPATHY
     Dosage: UNK UNK, BID
     Route: 065
  3. HYDROXYCHLOROQUINE [Concomitant]
     Active Substance: HYDROXYCHLOROQUINE
  4. PREDNISOLONE. [Concomitant]
     Active Substance: PREDNISOLONE
  5. SULFASALAZINE. [Concomitant]
     Active Substance: SULFASALAZINE

REACTIONS (6)
  - Abortion spontaneous [Unknown]
  - Psoriatic arthropathy [Unknown]
  - Vulvovaginal injury [Unknown]
  - Maternal exposure during pregnancy [Unknown]
  - Foetal death [Unknown]
  - Postoperative wound infection [Unknown]
